FAERS Safety Report 7292311-X (Version None)
Quarter: 2011Q1

REPORT INFORMATION
  Report Type: 
  Country: None (occurrence: None)
  Receive Date: 20110215
  Receipt Date: 20110201
  Transmission Date: 20110831
  Serious: Yes (Hospitalization, Other)
  Sender: FDA-Public Use
  Company Number: US-CELGENEUS-163-21880-10091485

PATIENT
  Sex: Female
  Weight: 74.456 kg

DRUGS (30)
  1. METHOTREXATE [Concomitant]
     Route: 048
  2. LORAZEPAM [Concomitant]
     Route: 065
     Dates: start: 20100504
  3. LEFLUNOMIDE [Concomitant]
     Route: 065
  4. HYDROXYCHLOROQUINE SULFATE [Concomitant]
     Route: 065
  5. PREDNISONE TAB [Concomitant]
     Route: 065
  6. PREDNISONE TAB [Concomitant]
     Route: 065
  7. SYNTHROID [Concomitant]
     Route: 065
  8. FISH OIL [Concomitant]
     Route: 065
  9. ALIGN [Concomitant]
     Route: 065
  10. ASPIRIN [Concomitant]
     Indication: ANTICOAGULANT THERAPY
     Route: 065
  11. LIDOCAINE HYDROCHLORIDE [Concomitant]
     Route: 065
     Dates: start: 20100504
  12. SULFASALAZINE [Concomitant]
     Route: 048
  13. NOVOLIN 70/30 [Concomitant]
     Dosage: 70/30 25 UNITS IN THE MORNING/7 UNITS IN THE EVENING
     Route: 065
  14. NEXIUM [Concomitant]
     Route: 065
  15. LYRICA [Concomitant]
     Route: 048
  16. REVLIMID [Suspect]
     Route: 048
     Dates: start: 20100526
  17. FENTANYL [Concomitant]
     Route: 002
     Dates: start: 20100504
  18. FOLIC ACID [Concomitant]
     Route: 065
  19. LEVO-GLOBULIN [Concomitant]
     Route: 065
  20. MULTI-VITAMINS [Concomitant]
     Route: 065
  21. GALANTAMINE HYDROBROMIDE [Concomitant]
     Route: 065
  22. SYMBICORT [Concomitant]
     Dosage: 160/4.5 2 INHALATIONS
     Route: 055
  23. LEVAQUIN [Concomitant]
     Route: 065
  24. FIBER CHOICE WITH CALCIUM [Concomitant]
     Route: 065
  25. PEPCID COMPLETE [Concomitant]
     Route: 065
  26. TYLENOL [Concomitant]
     Route: 065
  27. LOMOTIL [Concomitant]
     Dosage: 5 PILLS
     Route: 048
  28. ENALAPRIL MALEATE [Concomitant]
     Route: 065
  29. VYTORIN [Concomitant]
     Dosage: 10/80MG
     Route: 048
  30. LEVORPHANOL TARTRATE [Concomitant]
     Route: 065

REACTIONS (5)
  - DEHYDRATION [None]
  - URINARY TRACT INFECTION [None]
  - DIARRHOEA [None]
  - BLOOD GLUCOSE DECREASED [None]
  - DEEP VEIN THROMBOSIS [None]
